FAERS Safety Report 7805951-3 (Version None)
Quarter: 2011Q4

REPORT INFORMATION
  Report Type: 
  Country: None (occurrence: None)
  Receive Date: 20111007
  Receipt Date: 20111007
  Transmission Date: 20120403
  Serious: Yes (Hospitalization)
  Sender: FDA-Public Use
  Company Number: None

PATIENT
  Sex: Male
  Weight: 83.6 kg

DRUGS (2)
  1. PEMETREXED [Suspect]
     Indication: NON-SMALL CELL LUNG CANCER
     Dosage: 375MG/M2 Q 3 WEEKS IV
     Route: 042
     Dates: start: 20110907
  2. ERLOTINIB HYDROCHLORIDE [Suspect]
     Indication: NON-SMALL CELL LUNG CANCER
     Dosage: 100MG QD,DAYS 2-16/CYCLE PO
     Route: 048
     Dates: start: 20110908, end: 20110918

REACTIONS (14)
  - WHITE BLOOD CELL COUNT DECREASED [None]
  - HAEMOPTYSIS [None]
  - HAEMATOCRIT DECREASED [None]
  - THROMBOCYTOPENIA [None]
  - HAEMOGLOBIN DECREASED [None]
  - STOMATITIS [None]
  - MENTAL STATUS CHANGES [None]
  - DEHYDRATION [None]
  - NAUSEA [None]
  - DIARRHOEA [None]
  - HYPOAESTHESIA [None]
  - VOMITING [None]
  - HYPOPHAGIA [None]
  - EPISTAXIS [None]
